FAERS Safety Report 13050211 (Version 1)
Quarter: 2016Q4

REPORT INFORMATION
  Report Type: Spontaneous
  Country: US (occurrence: US)
  Receive Date: 20161221
  Receipt Date: 20161221
  Transmission Date: 20170207
  Serious: No
  Sender: FDA-Public Use
  Company Number: US-NOVOPROD-494064

PATIENT
  Sex: Female

DRUGS (1)
  1. LEVEMIR [Suspect]
     Active Substance: INSULIN DETEMIR
     Indication: TYPE 1 DIABETES MELLITUS
     Dosage: 10 U, QD
     Route: 058
     Dates: start: 20160513

REACTIONS (7)
  - Hyperglycaemia [Unknown]
  - Hypoglycaemia [Unknown]
  - Fall [Unknown]
  - Dyspnoea [Unknown]
  - Dizziness [Unknown]
  - Anxiety [Unknown]
  - Hyperhidrosis [Unknown]
